FAERS Safety Report 9269713 (Version 1)
Quarter: 2013Q2

REPORT INFORMATION
  Report Type: Spontaneous
  Country: NL (occurrence: NL)
  Receive Date: 20130503
  Receipt Date: 20130503
  Transmission Date: 20140414
  Serious: Yes (Hospitalization)
  Sender: FDA-Public Use
  Company Number: NL-BRISTOL-MYERS SQUIBB COMPANY-18838490

PATIENT
  Age: 15 Year
  Sex: Female

DRUGS (1)
  1. ABILIFY TABS [Suspect]
     Indication: ABNORMAL BEHAVIOUR
     Dosage: WEEK0:25MG/DY?WEEK1:20MG/DY?WEEK2:15MG/DY
     Route: 048

REACTIONS (3)
  - Restlessness [Recovered/Resolved]
  - Sedation [Recovered/Resolved]
  - Off label use [Unknown]
